FAERS Safety Report 11873044 (Version 1)
Quarter: 2015Q4

REPORT INFORMATION
  Report Type: Spontaneous
  Country: US (occurrence: US)
  Receive Date: 20151228
  Receipt Date: 20151228
  Transmission Date: 20160305
  Serious: No
  Sender: FDA-Public Use
  Company Number: US-BAXALTA-2015BLT003364

PATIENT
  Sex: Female
  Weight: 96.16 kg

DRUGS (1)
  1. HYQVIA [Suspect]
     Active Substance: HUMAN IMMUNOGLOBULIN G\HYALURONIDASE RECOMBINANT HUMAN
     Indication: PRIMARY IMMUNODEFICIENCY SYNDROME
     Dosage: 50G/500ML, EVERY 4 WK
     Route: 058
     Dates: start: 20150622

REACTIONS (3)
  - Infusion site extravasation [Recovered/Resolved]
  - Skin irritation [Recovering/Resolving]
  - Chemical burn of skin [Recovering/Resolving]
